FAERS Safety Report 8269671-6 (Version None)
Quarter: 2012Q2

REPORT INFORMATION
  Report Type: 
  Country: None (occurrence: None)
  Receive Date: 20120405
  Receipt Date: 20120322
  Transmission Date: 20120825
  Serious: Yes (Hospitalization, Other)
  Sender: FDA-Public Use
  Company Number: JPI-P-016103

PATIENT
  Age: 53 Year
  Sex: Male
  Weight: 122.4712 kg

DRUGS (11)
  1. ZIPRASIDONE HYDROCHLORIDE [Suspect]
     Indication: HALLUCINATION, AUDITORY
     Dosage: UNKNOWN
     Dates: start: 20110401, end: 20110727
  2. PROMETHAZINE [Concomitant]
  3. TESTOSTERONE [Concomitant]
  4. METOLAZONE [Concomitant]
  5. MELOXICAM [Concomitant]
  6. ASPIRIN [Concomitant]
  7. XYREM [Suspect]
     Indication: CATAPLEXY
     Dosage: 9 GM (4.5 GM, 2 IN 1 D) 2 IN 1 D, ORAL
     Route: 048
     Dates: start: 20101201
  8. XYREM [Suspect]
     Indication: CATAPLEXY
     Dosage: 9 GM (4.5 GM, 2 IN 1 D) 2 IN 1 D, ORAL
     Route: 048
     Dates: start: 20110401, end: 20110727
  9. OXYCODONE HCL [Concomitant]
  10. FUROSEMIDE [Concomitant]
  11. POTASSIUM SCHLORIDE [Concomitant]

REACTIONS (7)
  - DEVICE DISLOCATION [None]
  - BIPOLAR DISORDER [None]
  - INTERVERTEBRAL DISC COMPRESSION [None]
  - SOMNOLENCE [None]
  - HALLUCINATION, AUDITORY [None]
  - INCISION SITE INFECTION [None]
  - INTERVERTEBRAL DISC PROTRUSION [None]
